FAERS Safety Report 10586724 (Version 1)
Quarter: 2014Q4

REPORT INFORMATION
  Report Type: Spontaneous
  Country: US (occurrence: None)
  Receive Date: 20141114
  Receipt Date: 20141114
  Transmission Date: 20150529
  Serious: No
  Sender: FDA-Public Use
  Company Number: None

PATIENT
  Age: 51 Year
  Sex: Female
  Weight: 101.61 kg

DRUGS (1)
  1. BELVIQ [Suspect]
     Active Substance: LORCASERIN HYDROCHLORIDE
     Indication: OBESITY
     Dosage: ONE PILL, TWICE DAILY, TAKEN BY MOUTH
     Route: 048
     Dates: start: 20140829, end: 20140926

REACTIONS (3)
  - Weight decreased [None]
  - Cough [None]
  - Cardiac valve disease [None]

NARRATIVE: CASE EVENT DATE: 20140925
